FAERS Safety Report 5719861-9 (Version None)
Quarter: 2008Q2

REPORT INFORMATION
  Report Type: 
  Country: None (occurrence: None)
  Receive Date: 20080428
  Receipt Date: 20080416
  Transmission Date: 20081010
  Serious: Yes (Other)
  Sender: FDA-Public Use
  Company Number: US-MERCK-0705USA04134

PATIENT
  Sex: Female

DRUGS (1)
  1. FOSAMAX [Suspect]
     Indication: OSTEOPOROSIS
     Route: 048
     Dates: start: 19990901, end: 20060501

REACTIONS (6)
  - ARTHRALGIA [None]
  - DEAFNESS [None]
  - GINGIVAL BLEEDING [None]
  - RENAL DISORDER [None]
  - TOOTH EXTRACTION [None]
  - TOOTH LOSS [None]
